FAERS Safety Report 10647406 (Version 1)
Quarter: 2014Q4

REPORT INFORMATION
  Report Type: Spontaneous
  Country: DE (occurrence: DE)
  Receive Date: 20141211
  Receipt Date: 20141211
  Transmission Date: 20150529
  Serious: Yes (Other)
  Sender: FDA-Public Use
  Company Number: DE-PFIZER INC-2014335904

PATIENT
  Age: 53 Year
  Sex: Male

DRUGS (6)
  1. CRANOC [Concomitant]
     Active Substance: FLUVASTATIN SODIUM
     Dosage: 80 MG, UNK
  2. LANTUS [Concomitant]
     Active Substance: INSULIN GLARGINE
     Dosage: UNK
  3. HUMALOG [Concomitant]
     Active Substance: INSULIN LISPRO
     Dosage: UNK
  4. VALORON N RETARD [Concomitant]
     Indication: ARTHRALGIA
     Dosage: 100 MG, UNK
  5. VIOXX [Concomitant]
     Active Substance: ROFECOXIB
     Indication: ARTHRALGIA
     Dosage: 25 MG, UNK
  6. NEURONTIN [Suspect]
     Active Substance: GABAPENTIN
     Indication: NEURALGIA
     Dosage: 300 MG, UNK

REACTIONS (1)
  - Hypersensitivity vasculitis [Unknown]
